FAERS Safety Report 22098003 (Version 1)
Quarter: 2023Q1

REPORT INFORMATION
  Report Type: Spontaneous
  Country: US (occurrence: US)
  Receive Date: 20230315
  Receipt Date: 20230315
  Transmission Date: 20230418
  Serious: No
  Sender: FDA-Public Use
  Company Number: US-GLENMARK PHARMACEUTICALS-2023GMK079397

PATIENT

DRUGS (3)
  1. CICLOPIROX [Suspect]
     Active Substance: CICLOPIROX
     Indication: Fungal infection
     Dosage: TO BE APPLIED TWICE DAILY ON THE AFFECTED AREA (BID)
     Route: 061
     Dates: start: 20230122, end: 2023
  2. AMLODIPINE [Concomitant]
     Active Substance: AMLODIPINE BESYLATE
     Indication: Hypertension
     Dosage: 5 MILLIGRAM, SHE STARTED TAKING IT YEARS AGO AND STILL ON-GOING
     Route: 048
  3. ANASTROZOLE [Concomitant]
     Active Substance: ANASTROZOLE
     Indication: Breast cancer
     Dosage: 1 MILLIGRAM, QD, STARTED TAKING 4 YEARS AGO AND STILL ON-GOING
     Route: 048

REACTIONS (2)
  - Infection [Not Recovered/Not Resolved]
  - Drug ineffective [Unknown]

NARRATIVE: CASE EVENT DATE: 20230101
